FAERS Safety Report 6497129-3 (Version None)
Quarter: 2009Q4

REPORT INFORMATION
  Report Type: 
  Country: None (occurrence: None)
  Receive Date: 20091215
  Receipt Date: 20090326
  Transmission Date: 20100525
  Serious: No
  Sender: FDA-Public Use
  Company Number: A0776429A

PATIENT
  Age: 62 Year
  Sex: Male

DRUGS (7)
  1. AVODART [Suspect]
     Indication: BENIGN PROSTATIC HYPERPLASIA
     Dosage: .5MG PER DAY
     Dates: start: 20080301
  2. METOPROLOL [Concomitant]
  3. BLOOD PRESSURE MEDICATION [Concomitant]
  4. PREVACID [Concomitant]
  5. UNKNOWN [Concomitant]
  6. BABY ASPIRIN [Concomitant]
  7. SEROQUEL [Concomitant]

REACTIONS (2)
  - BURNING SENSATION [None]
  - POLLAKIURIA [None]
